FAERS Safety Report 25721962 (Version 1)
Quarter: 2025Q3

REPORT INFORMATION
  Report Type: Spontaneous
  Country: US (occurrence: US)
  Receive Date: 20250825
  Receipt Date: 20250825
  Transmission Date: 20251021
  Serious: Yes (Other)
  Sender: Norvium Bioscience
  Company Number: US-Norvium Bioscience LLC-080521

PATIENT
  Age: 57 Year
  Sex: Male

DRUGS (4)
  1. ARIPIPRAZOLE [Suspect]
     Active Substance: ARIPIPRAZOLE
     Indication: Agitation
  2. PHENYTOIN [Concomitant]
     Active Substance: PHENYTOIN
     Indication: Generalised tonic-clonic seizure
  3. GALANTAMINE [Concomitant]
     Active Substance: GALANTAMINE
     Indication: Product used for unknown indication
  4. PAROXETINE [Concomitant]
     Active Substance: PAROXETINE
     Indication: Product used for unknown indication

REACTIONS (3)
  - Tardive dyskinesia [Not Recovered/Not Resolved]
  - Parkinsonism [Recovering/Resolving]
  - Drug withdrawal syndrome [Unknown]
